FAERS Safety Report 17878746 (Version 1)
Quarter: 2020Q2

REPORT INFORMATION
  Report Type: Spontaneous
  Country: FR (occurrence: FR)
  Receive Date: 20200610
  Receipt Date: 20200610
  Transmission Date: 20200714
  Serious: Yes (Hospitalization, Other)
  Sender: FDA-Public Use
  Company Number: FR-SA-2020SA143537

PATIENT

DRUGS (3)
  1. DIAZEPAM. [Suspect]
     Active Substance: DIAZEPAM
     Indication: INTENTIONAL OVERDOSE
     Dosage: 500 MG, TOTAL
     Route: 048
     Dates: start: 20200407, end: 20200407
  2. LOXAPAC [LOXAPINE SUCCINATE] [Suspect]
     Active Substance: LOXAPINE SUCCINATE
     Indication: INTENTIONAL OVERDOSE
     Dosage: 250 MG, TOTAL
     Route: 048
     Dates: start: 20200407, end: 20200407
  3. ZOLPIDEM TARTRATE. [Suspect]
     Active Substance: ZOLPIDEM TARTRATE
     Indication: INTENTIONAL OVERDOSE
     Dosage: 280 MG, QD
     Route: 048
     Dates: start: 20200407, end: 20200407

REACTIONS (5)
  - Poisoning deliberate [Recovered/Resolved]
  - Housebound [Recovered/Resolved with Sequelae]
  - Tachycardia [Recovered/Resolved]
  - Intentional overdose [Unknown]
  - Somnolence [Recovering/Resolving]

NARRATIVE: CASE EVENT DATE: 20200407
